FAERS Safety Report 4522547-X (Version None)
Quarter: 2004Q4

REPORT INFORMATION
  Report Type: 
  Country: None (occurrence: None)
  Receive Date: 20041207
  Receipt Date: 20041117
  Transmission Date: 20050328
  Serious: Yes (Hospitalization)
  Sender: FDA-Public Use
  Company Number: EWC041141504

PATIENT
  Sex: Female

DRUGS (2)
  1. ZYPREXA [Suspect]
     Indication: ALCOHOLIC PSYCHOSIS
     Dosage: 10 MG/2 DAY
     Dates: start: 20041111, end: 20041112
  2. HALOPERIDOL [Concomitant]

REACTIONS (5)
  - BRADYCARDIA [None]
  - CONDITION AGGRAVATED [None]
  - ELECTROCARDIOGRAM QT PROLONGED [None]
  - SYNCOPE [None]
  - VENTRICULAR EXTRASYSTOLES [None]
